FAERS Safety Report 4881809-7 (Version None)
Quarter: 2006Q1

REPORT INFORMATION
  Report Type: 
  Country: None (occurrence: None)
  Receive Date: 20060117
  Receipt Date: 20060111
  Transmission Date: 20060701
  Serious: Yes (Hospitalization)
  Sender: FDA-Public Use
  Company Number: FR-JNJFOC-20051204799

PATIENT
  Age: 18 Year
  Sex: Female

DRUGS (2)
  1. REMICADE [Suspect]
     Indication: CROHN'S DISEASE
     Route: 042
  2. IMUREL [Concomitant]
     Indication: CROHN'S DISEASE

REACTIONS (14)
  - APHTHOUS STOMATITIS [None]
  - ARTHRALGIA [None]
  - ASCITES [None]
  - CONVERSION DISORDER [None]
  - DEPRESSION [None]
  - GENERAL PHYSICAL CONDITION [None]
  - LYMPHOPENIA [None]
  - PLEURISY [None]
  - PSYCHOTIC DISORDER [None]
  - RASH [None]
  - RAYNAUD'S PHENOMENON [None]
  - SYSTEMIC LUPUS ERYTHEMATOSUS [None]
  - TACHYCARDIA [None]
  - THROMBOCYTOPENIA [None]
